FAERS Safety Report 12385731 (Version 1)
Quarter: 2016Q2

REPORT INFORMATION
  Report Type: Spontaneous
  Country: US (occurrence: US)
  Receive Date: 20160519
  Receipt Date: 20160519
  Transmission Date: 20160815
  Serious: No
  Sender: FDA-Public Use
  Company Number: US-TARO-2016TAR00282

PATIENT
  Sex: Male

DRUGS (1)
  1. KEVEYIS [Suspect]
     Active Substance: DICHLORPHENAMIDE
     Dosage: 0.5 TABLETS, 2X/DAY

REACTIONS (3)
  - Paraesthesia [Unknown]
  - Drug administered to patient of inappropriate age [Unknown]
  - Condition aggravated [Unknown]
